FAERS Safety Report 4874960-9 (Version None)
Quarter: 2006Q1

REPORT INFORMATION
  Report Type: 
  Country: None (occurrence: None)
  Receive Date: 20060104
  Receipt Date: 20051223
  Transmission Date: 20060701
  Serious: Yes (Other)
  Sender: FDA-Public Use
  Company Number: 2005159463

PATIENT
  Age: 56 Year
  Sex: Male
  Weight: 117.9352 kg

DRUGS (8)
  1. VIAGRA [Suspect]
     Indication: ERECTILE DYSFUNCTION
     Dosage: (100 MG, AS NECESSARY)
     Dates: end: 20010101
  2. ALL OTHER THERAPEUTIC PRODUCTS (ALL OTHER THERAPEUTIC PRODUCTS) [Suspect]
     Indication: MYOCARDIAL INFARCTION
     Dates: start: 20010101
  3. METOPROLOL (METOPROLOL) [Suspect]
     Indication: ILL-DEFINED DISORDER
  4. ISOSORBIDE (ISOSORBIDE) [Suspect]
     Indication: ILL-DEFINED DISORDER
  5. ANTIHYPERTENSIVES (ANTIHYPERTENSIVES) [Suspect]
     Indication: HYPERTENSION
  6. PRANDIN [Suspect]
     Indication: DIABETES MELLITUS
     Dates: start: 20010101
  7. ASPIRIN [Concomitant]
  8. TYLENOL (PARACEMTAMOL) [Concomitant]

REACTIONS (4)
  - CATARACT [None]
  - DIABETES MELLITUS [None]
  - HYPERTENSION [None]
  - MYOCARDIAL INFARCTION [None]
